FAERS Safety Report 7565223-1 (Version None)
Quarter: 2011Q2

REPORT INFORMATION
  Report Type: 
  Country: None (occurrence: None)
  Receive Date: 20110622
  Receipt Date: 20110617
  Transmission Date: 20111010
  Serious: Yes (Hospitalization)
  Sender: FDA-Public Use
  Company Number: IT-MERCK-1106ITA00033

PATIENT
  Age: 74 Year
  Sex: Male

DRUGS (3)
  1. HYZAAR [Suspect]
     Route: 048
     Dates: start: 20070101, end: 20110325
  2. AMLODIPINE BESYLATE [Concomitant]
     Route: 048
  3. ATORVASTATIN CALCIUM [Concomitant]
     Route: 048

REACTIONS (2)
  - OEDEMA PERIPHERAL [None]
  - TACHYCARDIA PAROXYSMAL [None]
